FAERS Safety Report 7402024-9 (Version None)
Quarter: 2011Q2

REPORT INFORMATION
  Report Type: 
  Country: None (occurrence: None)
  Receive Date: 20110408
  Receipt Date: 20110324
  Transmission Date: 20111010
  Serious: Yes (Other)
  Sender: FDA-Public Use
  Company Number: CA-JNJFOC-20110310746

PATIENT
  Sex: Male

DRUGS (4)
  1. CHOLESTYRAMINE [Concomitant]
     Indication: DIARRHOEA
     Route: 048
  2. HYDROXOCOBALAMIN [Concomitant]
     Indication: VITAMIN B12 DEFICIENCY
     Route: 058
  3. BUSCOPAN [Concomitant]
     Indication: CROHN'S DISEASE
     Route: 048
  4. REMICADE [Suspect]
     Indication: PRODUCT USED FOR UNKNOWN INDICATION
     Route: 042

REACTIONS (5)
  - DRUG HYPERSENSITIVITY [None]
  - CHEST DISCOMFORT [None]
  - FLUSHING [None]
  - OBSTRUCTIVE AIRWAYS DISORDER [None]
  - LOWER RESPIRATORY TRACT INFECTION [None]
